FAERS Safety Report 16323495 (Version 4)
Quarter: 2019Q2

REPORT INFORMATION
  Report Type: Spontaneous
  Country: ES (occurrence: ES)
  Receive Date: 20190517
  Receipt Date: 20190607
  Transmission Date: 20190711
  Serious: Yes (Hospitalization, Other)
  Sender: FDA-Public Use
  Company Number: ES-AUROBINDO-AUR-APL-2019-025094

PATIENT

DRUGS (6)
  1. OXALIPLATIN. [Suspect]
     Active Substance: OXALIPLATIN
     Indication: COLON NEOPLASM
     Dosage: UNK, FOLFOX-6 REGIMEN
     Route: 065
  2. LEUCOVORIN CALCIUM. [Suspect]
     Active Substance: LEUCOVORIN CALCIUM
     Indication: COLON NEOPLASM
     Dosage: UNK, FOLFOX-6 REGIMEN
     Route: 065
  3. OXALIPLATIN. [Suspect]
     Active Substance: OXALIPLATIN
     Indication: COLON CANCER STAGE IV
  4. FLUOROURACIL. [Suspect]
     Active Substance: FLUOROURACIL
     Indication: COLON NEOPLASM
     Dosage: UNK, FOLFOX-6 REGIMEN
     Route: 065
  5. FLUOROURACIL. [Suspect]
     Active Substance: FLUOROURACIL
     Indication: COLON CANCER STAGE IV
  6. FOLINIC ACID [Suspect]
     Active Substance: LEUCOVORIN
     Indication: COLON CANCER STAGE IV
     Dosage: UNK
     Route: 065

REACTIONS (7)
  - Pain [Recovered/Resolved]
  - Enteritis [Recovered/Resolved]
  - Vomiting [Recovered/Resolved]
  - Leukopenia [Recovered/Resolved]
  - Hypoalbuminaemia [Recovered/Resolved]
  - Toxicity to various agents [Recovered/Resolved]
  - Abdominal distension [Recovered/Resolved]
